FAERS Safety Report 11929568 (Version 1)
Quarter: 2016Q1

REPORT INFORMATION
  Report Type: Spontaneous
  Country: US (occurrence: None)
  Receive Date: 20160119
  Receipt Date: 20160119
  Transmission Date: 20160526
  Serious: Yes (Hospitalization)
  Sender: FDA-Public Use
  Company Number: None

PATIENT
  Age: 83 Year
  Sex: Female
  Weight: 66.23 kg

DRUGS (3)
  1. NITROFURANTN [Suspect]
     Active Substance: NITROFURANTOIN
     Indication: URINARY TRACT INFECTION
     Dosage: 1 PILL TWICE DAILY BY MOUTH
     Route: 048
     Dates: start: 20151010, end: 20151010
  2. LEVOTHYROXINE SODIUM. [Concomitant]
     Active Substance: LEVOTHYROXINE SODIUM
  3. I CAPS [Concomitant]

REACTIONS (6)
  - Chest pain [None]
  - Pyrexia [None]
  - Feeling cold [None]
  - Asthenia [None]
  - Urinary tract infection [None]
  - Chills [None]

NARRATIVE: CASE EVENT DATE: 20151011
